FAERS Safety Report 4820668-5 (Version None)
Quarter: 2005Q4

REPORT INFORMATION
  Report Type: 
  Country: None (occurrence: None)
  Receive Date: 20051104
  Receipt Date: 20051024
  Transmission Date: 20060501
  Serious: Yes (Other)
  Sender: FDA-Public Use
  Company Number: AT-JNJFOC-20051004904

PATIENT
  Sex: Female

DRUGS (7)
  1. RISPERDAL [Suspect]
     Dosage: GIVEN AT 15 WEEKS GESTATION.
     Route: 048
  2. RISPERDAL [Suspect]
     Indication: DRUG USE FOR UNKNOWN INDICATION
     Dosage: GIVEN IN WEEKS 0-7 OF GESTATION.
     Route: 048
  3. HALDOL [Concomitant]
     Route: 030
  4. GEWACALM [Concomitant]
     Dosage: 10-20 MG
     Route: 030
  5. GEWACALM [Concomitant]
     Dosage: 10-20 MG
     Route: 030
  6. TEMESTA [Concomitant]
     Route: 048
  7. MIRTABENE [Concomitant]
     Route: 048

REACTIONS (2)
  - ABORTION INCOMPLETE [None]
  - DRUG EXPOSURE DURING PREGNANCY [None]
